FAERS Safety Report 10061044 (Version 2)
Quarter: 2018Q4

REPORT INFORMATION
  Report Type: Spontaneous
  Country: FR (occurrence: FR)
  Receive Date: 20140405
  Receipt Date: 20181031
  Transmission Date: 20190204
  Serious: Yes (Hospitalization, Other)
  Sender: FDA-Public Use
  Company Number: FR-ABBVIE-14K-056-1218005-00

PATIENT
  Age: 55 Year
  Sex: Male

DRUGS (5)
  1. TRUVADA [Suspect]
     Active Substance: EMTRICITABINE\TENOFOVIR DISOPROXIL FUMARATE
     Indication: HIV TEST POSITIVE
     Route: 048
     Dates: start: 201304, end: 201403
  2. PROPRANOLOL [Concomitant]
     Active Substance: PROPRANOLOL HYDROCHLORIDE
     Indication: PRODUCT USED FOR UNKNOWN INDICATION
  3. PREZISTA [Suspect]
     Active Substance: DARUNAVIR ETHANOLATE
     Indication: HIV TEST POSITIVE
     Route: 048
     Dates: start: 201304, end: 201403
  4. NORVIR [Suspect]
     Active Substance: RITONAVIR
     Indication: HIV TEST POSITIVE
     Route: 048
     Dates: start: 201304, end: 201403
  5. INEXIUM [Concomitant]
     Active Substance: ESOMEPRAZOLE
     Indication: PRODUCT USED FOR UNKNOWN INDICATION

REACTIONS (13)
  - Thrombocytopenia [Recovered/Resolved]
  - Blood urea increased [Unknown]
  - Diarrhoea [Unknown]
  - Anaemia of chronic disease [Unknown]
  - Brain oedema [Unknown]
  - Anaemia [Recovered/Resolved]
  - Seizure [Recovered/Resolved]
  - Coma [Unknown]
  - Blood HIV RNA below assay limit [Unknown]
  - Acute kidney injury [Recovered/Resolved with Sequelae]
  - Vomiting [Unknown]
  - Metabolic acidosis [Unknown]
  - CD4 lymphocytes increased [Unknown]

NARRATIVE: CASE EVENT DATE: 201312
